FAERS Safety Report 18813861 (Version 1)
Quarter: 2021Q1

REPORT INFORMATION
  Report Type: Other
  Country: JO (occurrence: JO)
  Receive Date: 20210201
  Receipt Date: 20210201
  Transmission Date: 20210419
  Serious: Yes (Life-Threatening)
  Sender: FDA-Public Use
  Company Number: JO-ROCHE-2752851

PATIENT

DRUGS (2)
  1. MYCOPHENOLATE MOFETIL. [Suspect]
     Active Substance: MYCOPHENOLATE MOFETIL
     Indication: ALLOGENIC STEM CELL TRANSPLANTATION
     Route: 065
  2. ELTROMBOPAG [Concomitant]
     Active Substance: ELTROMBOPAG

REACTIONS (2)
  - Graft versus host disease [Unknown]
  - Infection [Unknown]
